FAERS Safety Report 6141390-1 (Version None)
Quarter: 2009Q2

REPORT INFORMATION
  Report Type: 
  Country: None (occurrence: None)
  Receive Date: 20090402
  Receipt Date: 20090323
  Transmission Date: 20091009
  Serious: Yes (Hospitalization, Other)
  Sender: FDA-Public Use
  Company Number: US-AMGEN-TCS339737

PATIENT
  Sex: Female

DRUGS (1)
  1. ENBREL [Suspect]
     Indication: RHEUMATOID ARTHRITIS
     Route: 058
     Dates: start: 20020101

REACTIONS (9)
  - ASTHENIA [None]
  - BLOOD POTASSIUM INCREASED [None]
  - CHILLS [None]
  - HEADACHE [None]
  - HYPOTHYROIDISM [None]
  - MUSCLE ENZYME INCREASED [None]
  - PALLOR [None]
  - PYREXIA [None]
  - RENAL ARTERY OCCLUSION [None]
